FAERS Safety Report 17066364 (Version 1)
Quarter: 2019Q4

REPORT INFORMATION
  Report Type: Spontaneous
  Country: MX (occurrence: MX)
  Receive Date: 20191122
  Receipt Date: 20191122
  Transmission Date: 20200122
  Serious: Yes (Other)
  Sender: FDA-Public Use
  Company Number: MX-US-PROVELL PHARMACEUTICALS LLC-9129827

PATIENT
  Sex: Female

DRUGS (1)
  1. LEVOTHYROXINE. [Suspect]
     Active Substance: LEVOTHYROXINE
     Indication: HYPOTHYROIDISM

REACTIONS (5)
  - Skin discolouration [Unknown]
  - Pneumonia [Unknown]
  - Fatigue [Unknown]
  - Skin wrinkling [Unknown]
  - Drug hypersensitivity [Unknown]
